FAERS Safety Report 17804371 (Version 3)
Quarter: 2020Q3

REPORT INFORMATION
  Report Type: Spontaneous
  Country: GB (occurrence: GB)
  Receive Date: 20200519
  Receipt Date: 20200707
  Transmission Date: 20201102
  Serious: Yes (Other)
  Sender: FDA-Public Use
  Company Number: NVSC2020GB136698

PATIENT
  Sex: Female

DRUGS (2)
  1. LOSARTAN SANDOZ [Suspect]
     Active Substance: LOSARTAN
     Dosage: 50 MG, UNKNOWN
     Route: 065
  2. LOSARTAN SANDOZ [Suspect]
     Active Substance: LOSARTAN
     Indication: PRODUCT USED FOR UNKNOWN INDICATION
     Dosage: 25 MG, UNKNOWN
     Route: 065

REACTIONS (4)
  - Malaise [Unknown]
  - Hypertension [Unknown]
  - Suspected counterfeit product [Unknown]
  - Rebound effect [Unknown]

NARRATIVE: CASE EVENT DATE: 201912
